FAERS Safety Report 5542696-7 (Version None)
Quarter: 2007Q4

REPORT INFORMATION
  Report Type: 
  Country: None (occurrence: None)
  Receive Date: 20071210
  Receipt Date: 20040107
  Transmission Date: 20080405
  Serious: Yes (Death, Hospitalization)
  Sender: FDA-Public Use
  Company Number: US-PFIZER INC-2007100993

PATIENT
  Sex: Male

DRUGS (1)
  1. ATORVASTATIN [Suspect]

REACTIONS (4)
  - AUTOIMMUNE HEPATITIS [None]
  - CARDIAC DISORDER [None]
  - CORONARY ARTERY BYPASS [None]
  - LOW DENSITY LIPOPROTEIN INCREASED [None]
